FAERS Safety Report 9162371 (Version 2)
Quarter: 2013Q1

REPORT INFORMATION
  Report Type: Spontaneous
  Country: US (occurrence: US)
  Receive Date: 20130314
  Receipt Date: 20130321
  Transmission Date: 20140127
  Serious: No
  Sender: FDA-Public Use
  Company Number: US-PFIZER INC-2013083125

PATIENT
  Age: 64 Year
  Sex: Male

DRUGS (2)
  1. SUTENT [Suspect]
     Indication: RENAL CANCER
     Dosage: 50 MG, UNK
     Dates: start: 20130222
  2. ONDANSETRON HCL [Concomitant]
     Dosage: UNK

REACTIONS (3)
  - Fatigue [Unknown]
  - Nausea [Unknown]
  - Abdominal pain [Unknown]
